FAERS Safety Report 17665357 (Version 5)
Quarter: 2020Q3

REPORT INFORMATION
  Report Type: Report from Study
  Country: BE (occurrence: BE)
  Receive Date: 20200414
  Receipt Date: 20200805
  Transmission Date: 20201102
  Serious: Yes (Hospitalization, Other)
  Sender: FDA-Public Use
  Company Number: BE-PFIZER INC-2020148991

PATIENT
  Age: 63 Year
  Sex: Male
  Weight: 65 kg

DRUGS (17)
  1. CYTARABINE. [Suspect]
     Active Substance: CYTARABINE
     Indication: ACUTE MYELOID LEUKAEMIA
     Dosage: UNK
     Dates: start: 20190731
  2. CYTARABINE. [Suspect]
     Active Substance: CYTARABINE
     Dosage: UNK
     Dates: start: 20191007
  3. VALCYTE [Suspect]
     Active Substance: VALGANCICLOVIR HYDROCHLORIDE
     Dosage: 1800 MG, 1X/DAY (2X2DAY)
     Dates: start: 20200313, end: 20200326
  4. VALCYTE [Suspect]
     Active Substance: VALGANCICLOVIR HYDROCHLORIDE
     Dosage: UNK, 2X/DAY
     Dates: start: 20200415
  5. TACROLIMUS. [Concomitant]
     Active Substance: TACROLIMUS
     Dosage: UNK
  6. VALCYTE [Suspect]
     Active Substance: VALGANCICLOVIR HYDROCHLORIDE
     Dosage: 900 MG, 1X/DAY (2X1/DAY)
     Dates: start: 20200327, end: 20200404
  7. DAUNORUBICIN [Concomitant]
     Active Substance: DAUNORUBICIN
     Dosage: UNK
     Dates: start: 20191007
  8. IDARUBICIN HCL [Suspect]
     Active Substance: IDARUBICIN HYDROCHLORIDE
     Dosage: UNK
     Dates: start: 20191007
  9. VALCYTE [Suspect]
     Active Substance: VALGANCICLOVIR HYDROCHLORIDE
     Indication: CYTOMEGALOVIRUS INFECTION REACTIVATION
     Dosage: 400 MG, (2X400 MG)
     Dates: start: 20200109, end: 20200118
  10. CYMEVENE [GANCICLOVIR] [Suspect]
     Active Substance: GANCICLOVIR
     Dosage: UNK
     Route: 042
     Dates: start: 20191211, end: 20200213
  11. CYMEVENE [GANCICLOVIR] [Suspect]
     Active Substance: GANCICLOVIR
     Indication: CYTOMEGALOVIRUS INFECTION REACTIVATION
     Dosage: UNK
     Route: 042
     Dates: start: 20190731
  12. CYMEVENE [GANCICLOVIR] [Suspect]
     Active Substance: GANCICLOVIR
     Indication: CYTOMEGALOVIRUS INFECTION REACTIVATION
     Dosage: 500 MG, 1X/DAY
     Route: 042
     Dates: start: 20200118, end: 20200226
  13. AMBISOME [Concomitant]
     Active Substance: AMPHOTERICIN B
     Indication: BRONCHOPULMONARY ASPERGILLOSIS
     Dosage: UNK
     Dates: start: 20190903
  14. FLUDARABINE [Concomitant]
     Active Substance: FLUDARABINE PHOSPHATE
     Indication: CHEMOTHERAPY
     Dosage: UNK
     Dates: start: 20191211, end: 20200213
  15. IDARUBICIN HCL [Suspect]
     Active Substance: IDARUBICIN HYDROCHLORIDE
     Indication: ACUTE MYELOID LEUKAEMIA
     Dosage: UNK
     Dates: start: 20190731
  16. MARIBAVIR [Suspect]
     Active Substance: MARIBAVIR
     Indication: CYTOMEGALOVIRUS INFECTION REACTIVATION
     Dosage: 2 X 2 CO/DAY; 2 X 400 MG
     Dates: start: 20200109, end: 20200118
  17. VORICONAZOL [Concomitant]
     Active Substance: VORICONAZOLE
     Indication: BRONCHOPULMONARY ASPERGILLOSIS
     Dosage: UNK
     Dates: start: 20190817

REACTIONS (12)
  - Febrile neutropenia [Recovered/Resolved]
  - Bronchopulmonary aspergillosis [Unknown]
  - Cytomegalovirus infection reactivation [Recovered/Resolved]
  - Drug eruption [Recovered/Resolved]
  - Cytomegalovirus infection reactivation [Recovered/Resolved]
  - Escherichia sepsis [Unknown]
  - Cytomegalovirus infection reactivation [Unknown]
  - Cytomegalovirus infection reactivation [Recovered/Resolved]
  - Neurological decompensation [Recovered/Resolved]
  - Cytomegalovirus infection reactivation [Recovered/Resolved]
  - Infectious pleural effusion [Unknown]
  - Drug eruption [Unknown]

NARRATIVE: CASE EVENT DATE: 20190731
